FAERS Safety Report 8085909-2 (Version None)
Quarter: 2012Q1

REPORT INFORMATION
  Report Type: 
  Country: None (occurrence: None)
  Receive Date: 20120128
  Receipt Date: 20110504
  Transmission Date: 20120608
  Serious: No
  Sender: FDA-Public Use
  Company Number: US-ABBOTT-11P-163-0723515-00

PATIENT
  Age: 65 Year
  Sex: Male

DRUGS (9)
  1. HUMIRA [Suspect]
     Indication: RHEUMATOID ARTHRITIS
     Dates: start: 20091101
  2. ASPIRIN [Concomitant]
     Indication: CARDIAC DISORDER
     Dosage: 325 MG-DAILY
  3. AMLODIPINE [Concomitant]
     Indication: BLOOD PRESSURE
  4. TAMSULOSIN HCL [Concomitant]
     Indication: PROSTATIC DISORDER
  5. SERTRALINE HYDROCHLORIDE [Concomitant]
     Indication: DEPRESSION
  6. FOLIC ACID [Concomitant]
     Indication: PRODUCT USED FOR UNKNOWN INDICATION
  7. METOPROLOL TARTRATE [Concomitant]
     Indication: ARRHYTHMIA
  8. METHOTREXATE [Concomitant]
     Indication: PRODUCT USED FOR UNKNOWN INDICATION
     Dosage: 8 PILLS IN ONE WEEK
  9. LOSARTAN POTASSIUM AND HYDROCHLOROTHIAZIDE [Concomitant]
     Indication: BLOOD PRESSURE
     Dosage: 100/12.5MG QD

REACTIONS (2)
  - INCORRECT DOSE ADMINISTERED [None]
  - INJECTION SITE PAIN [None]
